FAERS Safety Report 23622146 (Version 1)
Quarter: 2024Q1

REPORT INFORMATION
  Report Type: Spontaneous
  Country: US (occurrence: US)
  Receive Date: 20240312
  Receipt Date: 20240312
  Transmission Date: 20240410
  Serious: Yes (Hospitalization, Disabling)
  Sender: FDA-Public Use
  Company Number: US-MYLANLABS-2024M1022362

PATIENT
  Age: 81 Year
  Sex: Male

DRUGS (1)
  1. HEPARIN [Suspect]
     Active Substance: HEPARIN SODIUM
     Indication: Prophylaxis
     Dosage: UNK
     Route: 065

REACTIONS (5)
  - Heparin-induced thrombocytopenia [Recovering/Resolving]
  - Ischaemic stroke [Unknown]
  - Acute kidney injury [Unknown]
  - Fall [Unknown]
  - Anaemia [Unknown]
